FAERS Safety Report 9691833 (Version 3)
Quarter: 2014Q1

REPORT INFORMATION
  Report Type: Spontaneous
  Country: US (occurrence: US)
  Receive Date: 20131117
  Receipt Date: 20140321
  Transmission Date: 20141002
  Serious: No
  Sender: FDA-Public Use
  Company Number: US-009507513-1310USA015371

PATIENT
  Age: 18 Year
  Sex: Female
  Weight: 80.73 kg

DRUGS (1)
  1. NEXPLANON [Suspect]
     Indication: CONTRACEPTION
     Dosage: 1 DF, LEFT ARM
     Route: 059
     Dates: start: 20130221, end: 20131101

REACTIONS (5)
  - Device kink [Not Recovered/Not Resolved]
  - Device dislocation [Recovered/Resolved]
  - Device difficult to use [Recovered/Resolved]
  - Pain in extremity [Not Recovered/Not Resolved]
  - Medical device complication [Recovered/Resolved]
